FAERS Safety Report 23431107 (Version 1)
Quarter: 2024Q1

REPORT INFORMATION
  Report Type: Spontaneous
  Country: CN (occurrence: CN)
  Receive Date: 20240123
  Receipt Date: 20240123
  Transmission Date: 20240410
  Serious: Yes (Hospitalization, Other)
  Sender: FDA-Public Use
  Company Number: CN-AMNEAL PHARMACEUTICALS-2024-AMRX-00146

PATIENT
  Age: 13 Year
  Sex: Female
  Weight: 55 kg

DRUGS (2)
  1. DIVALPROEX SODIUM ER [Suspect]
     Active Substance: DIVALPROEX SODIUM
     Indication: Product used for unknown indication
     Dosage: 0.2 GRAM X 68 TABLETS
     Route: 048
     Dates: start: 20210307
  2. VITAMIN D NOS [Concomitant]
     Active Substance: VITAMIN D NOS
     Indication: Product used for unknown indication
     Dosage: 400UNITS X 4 TABLETS
     Route: 065
     Dates: start: 20210307

REACTIONS (4)
  - Unresponsive to stimuli [Recovering/Resolving]
  - Vomiting [Recovering/Resolving]
  - Fatigue [Recovering/Resolving]
  - Overdose [Unknown]
